FAERS Safety Report 21915428 (Version 2)
Quarter: 2023Q1

REPORT INFORMATION
  Report Type: Spontaneous
  Country: JP (occurrence: None)
  Receive Date: 20230126
  Receipt Date: 20230317
  Transmission Date: 20230418
  Serious: Yes (Hospitalization)
  Sender: FDA-Public Use
  Company Number: 2023A016888

PATIENT
  Sex: Male

DRUGS (3)
  1. EVUSHELD [Suspect]
     Active Substance: CILGAVIMAB\TIXAGEVIMAB
     Indication: COVID-19 prophylaxis
     Route: 030
     Dates: start: 202212
  2. REVLIMID [Concomitant]
     Active Substance: LENALIDOMIDE
     Dosage: DOSE UNKNOWN
     Route: 065
  3. RITUXAN [Concomitant]
     Active Substance: RITUXIMAB
     Dosage: DOSE UNKNOWN
     Route: 065

REACTIONS (2)
  - COVID-19 [Recovered/Resolved]
  - Pneumonia [Recovered/Resolved]

NARRATIVE: CASE EVENT DATE: 20230101
